FAERS Safety Report 16468328 (Version 6)
Quarter: 2019Q4

REPORT INFORMATION
  Report Type: Spontaneous
  Country: AU (occurrence: AU)
  Receive Date: 20190624
  Receipt Date: 20191122
  Transmission Date: 20200122
  Serious: Yes (Death, Hospitalization)
  Sender: FDA-Public Use
  Company Number: AU-ACTELION-A-CH2019-191859

PATIENT
  Age: 81 Year
  Sex: Female

DRUGS (2)
  1. OPSUMIT [Suspect]
     Active Substance: MACITENTAN
     Indication: PULMONARY ARTERIAL HYPERTENSION
     Dosage: 10 MG, OD
     Route: 048
     Dates: start: 20160509
  2. SILDENAFIL. [Suspect]
     Active Substance: SILDENAFIL
     Indication: PULMONARY ARTERIAL HYPERTENSION
     Dosage: 25 MG, TID
     Route: 048
     Dates: start: 20160509

REACTIONS (5)
  - Facial bones fracture [Recovered/Resolved with Sequelae]
  - Aortic stenosis [Fatal]
  - Pulmonary arterial hypertension [Recovered/Resolved]
  - Fall [Recovered/Resolved with Sequelae]
  - Disease progression [Recovered/Resolved]

NARRATIVE: CASE EVENT DATE: 20190606
